FAERS Safety Report 7715521-3 (Version None)
Quarter: 2011Q3

REPORT INFORMATION
  Report Type: 
  Country: None (occurrence: None)
  Receive Date: 20110810
  Receipt Date: 20110421
  Transmission Date: 20111222
  Serious: No
  Sender: FDA-Public Use
  Company Number: 1000020365

PATIENT
  Age: 80 Year
  Sex: Female

DRUGS (9)
  1. SAVELLA [Suspect]
     Indication: PAIN IN EXTREMITY
     Dosage: SEE IMAGE
     Route: 048
     Dates: start: 20110401, end: 20110401
  2. SAVELLA [Suspect]
     Indication: DEPRESSION
     Dosage: SEE IMAGE
     Route: 048
     Dates: start: 20110401, end: 20110401
  3. SAVELLA [Suspect]
     Indication: PAIN IN EXTREMITY
     Dosage: SEE IMAGE
     Route: 048
     Dates: start: 20110401, end: 20110401
  4. SAVELLA [Suspect]
     Indication: DEPRESSION
     Dosage: SEE IMAGE
     Route: 048
     Dates: start: 20110401, end: 20110401
  5. SAVELLA [Suspect]
     Indication: PAIN IN EXTREMITY
     Dosage: SEE IMAGE
     Route: 048
     Dates: start: 20110401
  6. SAVELLA [Suspect]
     Indication: DEPRESSION
     Dosage: SEE IMAGE
     Route: 048
     Dates: start: 20110401
  7. SAVELLA [Suspect]
     Indication: PAIN IN EXTREMITY
     Dosage: SEE IMAGE
     Route: 048
     Dates: start: 20110401, end: 20110401
  8. SAVELLA [Suspect]
     Indication: DEPRESSION
     Dosage: SEE IMAGE
     Route: 048
     Dates: start: 20110401, end: 20110401
  9. ALPRAZOLAM (ALPRAZOLAM) (TABLETS) (ALPRAZOLAM) [Concomitant]

REACTIONS (1)
  - ABDOMINAL PAIN UPPER [None]
